FAERS Safety Report 5049068-2 (Version None)
Quarter: 2006Q3

REPORT INFORMATION
  Report Type: 
  Country: None (occurrence: None)
  Receive Date: 20060712
  Receipt Date: 20060628
  Transmission Date: 20061208
  Serious: Yes (Other)
  Sender: FDA-Public Use
  Company Number: PHBS2006JP09838

PATIENT

DRUGS (1)
  1. NEORAL [Suspect]
     Route: 048

REACTIONS (2)
  - CONCOMITANT DISEASE AGGRAVATED [None]
  - HYPERTROPHIC CARDIOMYOPATHY [None]
